FAERS Safety Report 24427114 (Version 1)
Quarter: 2024Q4

REPORT INFORMATION
  Report Type: Spontaneous
  Country: US (occurrence: US)
  Receive Date: 20241011
  Receipt Date: 20241011
  Transmission Date: 20250115
  Serious: Yes (Life-Threatening, Hospitalization, Other)
  Sender: HIKMA
  Company Number: US-HIKMA PHARMACEUTICALS USA INC.-US-H14001-24-09283

PATIENT
  Age: 48 Year
  Sex: Female

DRUGS (1)
  1. HEPARIN [Suspect]
     Active Substance: HEPARIN SODIUM
     Indication: Product used for unknown indication
     Dosage: UNK, EXPOSED DURING CATHETERIZATION AND REEXPOSED DURING CABG AND LATER AFTER DEVELOPING DVT
     Route: 065

REACTIONS (6)
  - Ischaemia [Recovering/Resolving]
  - Cerebral infarction [Recovering/Resolving]
  - Embolic stroke [Recovering/Resolving]
  - Cardiac ventricular thrombosis [Recovering/Resolving]
  - Deep vein thrombosis [Recovering/Resolving]
  - Heparin-induced thrombocytopenia [Recovering/Resolving]
